FAERS Safety Report 21707512 (Version 1)
Quarter: 2022Q4

REPORT INFORMATION
  Report Type: Spontaneous
  Country: US (occurrence: None)
  Receive Date: 20221209
  Receipt Date: 20221209
  Transmission Date: 20230113
  Serious: No
  Sender: FDA-Public Use
  Company Number: 2022A387153

PATIENT
  Sex: Female
  Weight: 84.8 kg

DRUGS (2)
  1. TEZSPIRE [Suspect]
     Active Substance: TEZEPELUMAB-EKKO
     Indication: Cough
     Dosage: 210 MG/1.91 ML PREFILLED SYRINGE, EVERY FOUR WEEKS
     Route: 058
  2. TEZSPIRE [Suspect]
     Active Substance: TEZEPELUMAB-EKKO
     Indication: Asthma
     Dosage: 210 MG/1.91 ML PREFILLED SYRINGE, EVERY FOUR WEEKS
     Route: 058

REACTIONS (3)
  - Cough [Unknown]
  - Product dose omission issue [Unknown]
  - Off label use [Unknown]
